FAERS Safety Report 4968023-1 (Version None)
Quarter: 2006Q2

REPORT INFORMATION
  Report Type: 
  Country: None (occurrence: None)
  Receive Date: 20060404
  Receipt Date: 20060320
  Transmission Date: 20061013
  Serious: Yes (Life-Threatening, Hospitalization)
  Sender: FDA-Public Use
  Company Number: 222911

PATIENT
  Age: 66 Year
  Sex: Female
  Weight: 66.9 kg

DRUGS (19)
  1. BEVACIZUMAB OR PLACEBO (BEVACIZUMAB) PWDR + SOLVENT, INFUSION SOLN, 10 [Suspect]
     Indication: NON-SMALL CELL LUNG CANCER
     Dosage: 1020 MG, Q3W, INTRAVENOUS
     Route: 042
     Dates: start: 20051128
  2. BEVACIZUMAB OR PLACEBO (BEVACIZUMAB) PWDR + SOLVENT, INFUSION SOLN, 10 [Suspect]
  3. BEVACIZUMAB OR PLACEBO (BEVACIZUMAB) PWDR + SOLVENT, INFUSION SOLN, 10 [Suspect]
  4. ERLOTINIB (ERLOTINIB), TABLET, 150MG [Suspect]
     Indication: NON-SMALL CELL LUNG CANCER
     Dosage: 150 MG, QD,
     Dates: start: 20051128
  5. ANTIBIOTIC NOS (ANTIBIOTICS NOS) [Concomitant]
  6. AUGMENTIN '250' [Concomitant]
  7. TRILEPTAL [Concomitant]
  8. XANAX [Concomitant]
  9. ALBUTEROL (ALBUTEROL/ALBUTEROL SULFATE) [Concomitant]
  10. LOPERAMIDE [Concomitant]
  11. HCTZ (HYDROCHLOROTHIAZIDE) [Concomitant]
  12. PAXIL [Concomitant]
  13. PHENERGAN (PROMETHAZINE HYDROCHLORIDE) [Concomitant]
  14. SENNOSIDE (SENNOSIDES) [Concomitant]
  15. LEVAQUIN [Concomitant]
  16. CLONIDINE [Concomitant]
  17. AYR SALINE (SODIUM CHLORIDE) [Concomitant]
  18. PREVACID [Concomitant]
  19. AVELOX [Concomitant]

REACTIONS (7)
  - CHEST X-RAY ABNORMAL [None]
  - DYSPHONIA [None]
  - HAEMOPTYSIS [None]
  - PHARYNGOLARYNGEAL PAIN [None]
  - PLATELET COUNT INCREASED [None]
  - PULMONARY HAEMORRHAGE [None]
  - SINUSITIS [None]
